FAERS Safety Report 9937404 (Version 1)
Quarter: 2014Q1

REPORT INFORMATION
  Report Type: Spontaneous
  Country: AU (occurrence: AU)
  Receive Date: 20140303
  Receipt Date: 20140303
  Transmission Date: 20141002
  Serious: Yes (Other)
  Sender: FDA-Public Use
  Company Number: AU-PAR PHARMACEUTICAL, INC-2014SCPR008946

PATIENT
  Sex: 0

DRUGS (5)
  1. LAMOTRIGINE [Suspect]
     Indication: IDIOPATHIC GENERALISED EPILEPSY
     Dosage: 3 DF, / DAY, 600 MG, 1 DF IN MORNING AND 2 DF IN NIGHT
     Route: 065
     Dates: start: 2006
  2. LAMOTRIGINE [Suspect]
     Dosage: UNK, UNKNOWN
     Route: 065
  3. LEVETIRACETAM [Suspect]
     Indication: IDIOPATHIC GENERALISED EPILEPSY
     Dosage: 2 DF, BID
     Route: 065
     Dates: start: 2001
  4. VALPROIC ACID [Concomitant]
     Indication: IDIOPATHIC GENERALISED EPILEPSY
     Dosage: UNK, UNKNOWN
     Route: 065
     Dates: start: 2000, end: 2009
  5. GABAPENTIN [Concomitant]
     Indication: IDIOPATHIC GENERALISED EPILEPSY
     Dosage: UNK, UNKNOWN
     Route: 065
     Dates: end: 2009

REACTIONS (1)
  - Pathological gambling [Unknown]
